FAERS Safety Report 8015992-1 (Version None)
Quarter: 2011Q4

REPORT INFORMATION
  Report Type: 
  Country: None (occurrence: None)
  Receive Date: 20111230
  Receipt Date: 20111230
  Transmission Date: 20120403
  Serious: No
  Sender: FDA-Public Use
  Company Number: None

PATIENT
  Age: 83 Year
  Sex: Male
  Weight: 91.625 kg

DRUGS (1)
  1. LANSOPRAZOLE [Suspect]
     Indication: GASTROOESOPHAGEAL REFLUX DISEASE
     Dosage: ONE
     Route: 048
     Dates: start: 20111107, end: 20111229

REACTIONS (3)
  - RASH MACULAR [None]
  - HAIR GROWTH ABNORMAL [None]
  - PRODUCT SUBSTITUTION ISSUE [None]
